FAERS Safety Report 6540596-7 (Version None)
Quarter: 2010Q1

REPORT INFORMATION
  Report Type: 
  Country: None (occurrence: None)
  Receive Date: 20100112
  Receipt Date: 20091019
  Transmission Date: 20100710
  Serious: No
  Sender: FDA-Public Use
  Company Number: 2009-00667

PATIENT
  Sex: Female

DRUGS (1)
  1. COLD REMEDY GEL SWABS [Suspect]
     Dosage: QD FOR 3 DAYS
     Dates: start: 20091015, end: 20091018

REACTIONS (1)
  - ANOSMIA [None]
